FAERS Safety Report 20123276 (Version 4)
Quarter: 2022Q2

REPORT INFORMATION
  Report Type: Spontaneous
  Country: US (occurrence: US)
  Receive Date: 20211129
  Receipt Date: 20220520
  Transmission Date: 20220721
  Serious: Yes (Other)
  Sender: FDA-Public Use
  Company Number: US-NOVOPROD-869909

PATIENT
  Sex: Male

DRUGS (5)
  1. NOVOLOG [Suspect]
     Active Substance: INSULIN ASPART
     Dosage: 3 DOSES DAILY
     Route: 058
     Dates: end: 2021
  2. NOVOLOG [Suspect]
     Active Substance: INSULIN ASPART
     Dosage: 3 DOSES DAILY
     Route: 058
     Dates: end: 2021
  3. NOVOLOG [Suspect]
     Active Substance: INSULIN ASPART
     Dosage: 3 DOSES DAILY
     Route: 058
     Dates: end: 2021
  4. NOVOLOG [Suspect]
     Active Substance: INSULIN ASPART
     Indication: Type 2 diabetes mellitus
     Dosage: 3 DOSES DAILY
     Route: 058
     Dates: end: 2021
  5. TRESIBA [Suspect]
     Active Substance: INSULIN DEGLUDEC
     Indication: Type 2 diabetes mellitus
     Dosage: UNK
     Route: 058
     Dates: end: 2021

REACTIONS (6)
  - Liver disorder [Unknown]
  - Cardiac disorder [Unknown]
  - Renal failure [Unknown]
  - Blood glucose increased [Unknown]
  - Product quality issue [Unknown]
  - Drug ineffective [Unknown]

NARRATIVE: CASE EVENT DATE: 20211001
